FAERS Safety Report 20910271 (Version 1)
Quarter: 2022Q2

REPORT INFORMATION
  Report Type: Report from Study
  Country: FR (occurrence: FR)
  Receive Date: 20220603
  Receipt Date: 20220603
  Transmission Date: 20220721
  Serious: Yes (Hospitalization)
  Sender: FDA-Public Use
  Company Number: FR-NOVARTISPH-NVSC2022FR123031

PATIENT
  Age: 7 Year
  Sex: Male
  Weight: 25.9 kg

DRUGS (15)
  1. ENALAPRIL [Suspect]
     Active Substance: ENALAPRIL
     Indication: Blood pressure management
     Dosage: 10 MG, QD
     Route: 065
     Dates: start: 20190604
  2. SOLIRIS [Suspect]
     Active Substance: ECULIZUMAB
     Indication: Product used for unknown indication
     Dosage: 900 MG, UNK
     Route: 065
     Dates: start: 20220115
  3. CHOLECALCIFEROL [Concomitant]
     Active Substance: CHOLECALCIFEROL
     Indication: Product used for unknown indication
     Dosage: UNK, EVERY 3 MONTHS
     Route: 065
  4. FOLIC ACID [Concomitant]
     Active Substance: FOLIC ACID
     Indication: Product used for unknown indication
     Dosage: 5 MG, QD
     Route: 065
  5. PENICILLIN V [Concomitant]
     Active Substance: PENICILLIN V
     Indication: Antibiotic prophylaxis
     Dosage: 6.5 ML, BID
     Route: 065
  6. PENICILLIN V [Concomitant]
     Active Substance: PENICILLIN V
     Dosage: 10 ML, BID (IN MORNING AND EVENING)
     Route: 065
  7. PREDNISONE [Concomitant]
     Active Substance: PREDNISONE
     Indication: Product used for unknown indication
     Dosage: 45 MG, 1D/2
     Route: 065
  8. PREDNISONE [Concomitant]
     Active Substance: PREDNISONE
     Dosage: 60 UNK
     Route: 065
  9. CELLCEPT [Concomitant]
     Active Substance: MYCOPHENOLATE MOFETIL
     Indication: Product used for unknown indication
     Dosage: 3 ML, BID (IN MORNING AND EVENING)
     Route: 065
  10. CALCIVIT D3 [Concomitant]
     Indication: Product used for unknown indication
     Dosage: 2 PACKS PER DAY
     Route: 065
  11. PHOSPHORUS [Concomitant]
     Active Substance: PHOSPHORUS
     Indication: Hypophosphataemia
     Dosage: 0.76 MMOL/L FOR 24 HOURS
     Route: 042
  12. POLARAMINE [Concomitant]
     Active Substance: DEXCHLORPHENIRAMINE MALEATE
     Indication: Pruritus
     Dosage: UNK
     Route: 065
  13. SODIUM FEREDETATE [Concomitant]
     Active Substance: SODIUM FEREDETATE
     Indication: Product used for unknown indication
     Dosage: 4 ML, (MORNING, NOON AND EVENING)
     Route: 048
  14. BACTRIM [Concomitant]
     Active Substance: SULFAMETHOXAZOLE\TRIMETHOPRIM
     Indication: Product used for unknown indication
     Dosage: 800 MG, TIW
     Route: 065
  15. SODIUM BICARBONATE [Concomitant]
     Active Substance: SODIUM BICARBONATE
     Indication: Product used for unknown indication
     Dosage: 1500 MG, QD (500 MG, TID)
     Route: 065

REACTIONS (7)
  - Lethargy [Recovered/Resolved]
  - Anti-complement antibody [Unknown]
  - COVID-19 [Recovered/Resolved]
  - Cholelithiasis [Recovered/Resolved]
  - Hepatitis [Recovered/Resolved]
  - Hypotension [Recovered/Resolved]
  - Vomiting [Recovered/Resolved]

NARRATIVE: CASE EVENT DATE: 20190607
